FAERS Safety Report 24327395 (Version 1)
Quarter: 2024Q3

REPORT INFORMATION
  Report Type: Spontaneous
  Country: IT (occurrence: IT)
  Receive Date: 20240917
  Receipt Date: 20240917
  Transmission Date: 20241016
  Serious: Yes (Other)
  Sender: RANBAXY
  Company Number: IT-MINISAL02-994282

PATIENT
  Age: 77 Year
  Sex: Female

DRUGS (2)
  1. OXALIPLATIN [Suspect]
     Active Substance: OXALIPLATIN
     Indication: Rectosigmoid cancer
     Dosage: 160 MILLIGRAM
     Route: 040
     Dates: start: 20240703, end: 20240703
  2. DEXAMETHASONE [Concomitant]
     Active Substance: DEXAMETHASONE
     Indication: Premedication
     Dosage: UNK
     Route: 040
     Dates: start: 20240703, end: 20240703

REACTIONS (3)
  - Throat tightness [Recovered/Resolved]
  - Rales [Recovered/Resolved]
  - Anxiety [Recovered/Resolved]

NARRATIVE: CASE EVENT DATE: 20240703
